FAERS Safety Report 19203707 (Version 1)
Quarter: 2021Q2

REPORT INFORMATION
  Report Type: Spontaneous
  Country: UA (occurrence: UA)
  Receive Date: 20210503
  Receipt Date: 20210503
  Transmission Date: 20210717
  Serious: Yes (Death)
  Sender: FDA-Public Use
  Company Number: UA-OCTA-GAM06321UA

PATIENT
  Sex: Female

DRUGS (1)
  1. OCTAGAM IMMUNE GLOBULIN (HUMAN) [Suspect]
     Active Substance: HUMAN IMMUNOGLOBULIN G
     Indication: PRODUCT USED FOR UNKNOWN INDICATION
     Route: 042

REACTIONS (4)
  - Therapeutic product effect incomplete [Unknown]
  - Adverse drug reaction [Unknown]
  - Death [Fatal]
  - Poor quality product administered [Unknown]

NARRATIVE: CASE EVENT DATE: 20210420
